FAERS Safety Report 16954761 (Version 1)
Quarter: 2019Q4

REPORT INFORMATION
  Report Type: Spontaneous
  Country: IT (occurrence: IT)
  Receive Date: 20191024
  Receipt Date: 20191024
  Transmission Date: 20200122
  Serious: Yes (Other)
  Sender: FDA-Public Use
  Company Number: IT-AUROBINDO-AUR-APL-2019-068819

PATIENT
  Age: 69 Year
  Sex: Female

DRUGS (4)
  1. OXALIPLATIN. [Suspect]
     Active Substance: OXALIPLATIN
     Indication: COLON CANCER
     Dosage: 127 MILLIGRAM, CYCLICAL
     Route: 042
     Dates: start: 20190801
  2. FLUOROURACIL. [Concomitant]
     Active Substance: FLUOROURACIL
     Indication: COLON CANCER
     Dosage: 3750 MILLIGRAM
     Route: 042
     Dates: start: 20190801, end: 20191009
  3. DOXIFLURIDINE [Concomitant]
     Active Substance: DOXIFLURIDINE
     Indication: COLON CANCER
     Dosage: 600 MILLIGRAM
     Route: 040
     Dates: start: 20190801, end: 20191009
  4. AVASTIN [Concomitant]
     Active Substance: BEVACIZUMAB
     Indication: COLON CANCER
     Dosage: 300 MILLIGRAM
     Route: 042
     Dates: start: 20190801, end: 20191009

REACTIONS (3)
  - Throat tightness [Recovered/Resolved]
  - Dyspnoea [Recovered/Resolved]
  - Laryngospasm [Recovered/Resolved]

NARRATIVE: CASE EVENT DATE: 20191009
